FAERS Safety Report 24679279 (Version 1)
Quarter: 2024Q4

REPORT INFORMATION
  Report Type: Spontaneous
  Country: US (occurrence: US)
  Receive Date: 20241129
  Receipt Date: 20241129
  Transmission Date: 20250115
  Serious: Yes (Other)
  Sender: RANBAXY
  Company Number: US-SUN PHARMACEUTICAL INDUSTRIES LTD-2024R1-481764

PATIENT
  Age: 12 Year
  Sex: Male

DRUGS (3)
  1. PREDNISONE [Suspect]
     Active Substance: PREDNISONE
     Indication: Staphylococcal sepsis
     Dosage: 0.9 MILLIGRAM/KILOGRAM, DAILY
     Route: 065
  2. DESONIDE [Concomitant]
     Active Substance: DESONIDE
     Indication: Staphylococcal sepsis
     Dosage: UNK, BID
     Route: 061
  3. TRIAMCINOLONE ACETONIDE [Concomitant]
     Active Substance: TRIAMCINOLONE ACETONIDE
     Indication: Staphylococcal sepsis
     Dosage: UNK, BID
     Route: 061

REACTIONS (1)
  - Condition aggravated [Unknown]
